FAERS Safety Report 4519464-8 (Version None)
Quarter: 2004Q4

REPORT INFORMATION
  Report Type: 
  Country: None (occurrence: None)
  Receive Date: 20041202
  Receipt Date: 20041119
  Transmission Date: 20050328
  Serious: Yes (Death, Life-Threatening)
  Sender: FDA-Public Use
  Company Number: 2004-00832

PATIENT
  Age: 78 Year
  Sex: Male
  Weight: 84 kg

DRUGS (8)
  1. VELCADE [Suspect]
     Indication: MULTIPLE MYELOMA
     Dosage: INTRAVENOUS
     Route: 042
     Dates: start: 20040122, end: 20040219
  2. ASPEGIC 1000 [Concomitant]
  3. TENORMIN [Concomitant]
  4. VASTAREL (TRIMETAZIDINE HYDROCHLORIDE) [Concomitant]
  5. ZOCOR [Concomitant]
  6. CALDINE (LACIDIPINE) [Concomitant]
  7. POTASSIUM CHLORIDE [Concomitant]
  8. ZOLPIDEM TARTRATE [Concomitant]

REACTIONS (4)
  - DYSPNOEA EXERTIONAL [None]
  - PULMONARY ALVEOLAR HAEMORRHAGE [None]
  - SUDDEN DEATH [None]
  - THROMBOCYTOPENIA [None]
